FAERS Safety Report 9286059 (Version 1)
Quarter: 2013Q2

REPORT INFORMATION
  Report Type: Spontaneous
  Country: US (occurrence: None)
  Receive Date: 20130510
  Receipt Date: 20130510
  Transmission Date: 20140414
  Serious: No
  Sender: FDA-Public Use
  Company Number: None

PATIENT
  Age: 65 Year
  Sex: Male
  Weight: 93.5 kg

DRUGS (1)
  1. LATANOPROST [Suspect]
     Indication: OCULAR HYPERTENSION
     Dates: start: 20120725

REACTIONS (1)
  - Treatment failure [None]
